FAERS Safety Report 5489336-3 (Version None)
Quarter: 2007Q4

REPORT INFORMATION
  Report Type: 
  Country: None (occurrence: None)
  Receive Date: 20071016
  Receipt Date: 20071016
  Transmission Date: 20080405
  Serious: Yes (Life-Threatening, Hospitalization, Disabling)
  Sender: FDA-Public Use
  Company Number: None

PATIENT
  Age: 18 Year
  Sex: Female
  Weight: 52.1637 kg

DRUGS (1)
  1. YASMINE 2Q DAY [Suspect]
     Indication: DYSMENORRHOEA
     Dosage: 1 QD
     Dates: start: 20070707, end: 20070708

REACTIONS (1)
  - THROMBOSIS [None]
